FAERS Safety Report 10511597 (Version 1)
Quarter: 2014Q4

REPORT INFORMATION
  Report Type: Spontaneous
  Country: GB (occurrence: GB)
  Receive Date: 20141010
  Receipt Date: 20141010
  Transmission Date: 20150528
  Serious: Yes (Other)
  Sender: FDA-Public Use
  Company Number: GB-ACTAVIS-2014-21600

PATIENT
  Age: 17 Year
  Sex: Male

DRUGS (1)
  1. RANITIDINE (UNKNOWN) [Suspect]
     Active Substance: RANITIDINE HYDROCHLORIDE
     Indication: CHEST PAIN
     Dosage: UNK
     Route: 065

REACTIONS (4)
  - Chest pain [Recovering/Resolving]
  - Off label use [Unknown]
  - Lower respiratory tract infection [Recovering/Resolving]
  - Tachycardia [Recovering/Resolving]
